FAERS Safety Report 5107572-2 (Version None)
Quarter: 2006Q3

REPORT INFORMATION
  Report Type: 
  Country: None (occurrence: None)
  Receive Date: 20060913
  Receipt Date: 20060913
  Transmission Date: 20061208
  Serious: Yes (Other)
  Sender: FDA-Public Use
  Company Number: None

PATIENT
  Age: 60 Year
  Sex: Female

DRUGS (12)
  1. REVLIMID [Suspect]
     Indication: MULTIPLE MYELOMA
     Dosage: 20MG TO 5MG QD PO
     Route: 048
     Dates: start: 20060901, end: 20060910
  2. CASPOFUNGIN [Concomitant]
  3. FLUCONAZOLE [Concomitant]
  4. MEROPENEM [Concomitant]
  5. DECADRON [Concomitant]
  6. NEUPOGEN [Concomitant]
  7. EPOGEN [Concomitant]
  8. COLACE [Concomitant]
  9. DARVOCET-N 100 [Concomitant]
  10. TYLENOL [Concomitant]
  11. DULCOLAX [Concomitant]
  12. REVLIMID [Suspect]

REACTIONS (5)
  - ASPERGILLOSIS [None]
  - BONE PAIN [None]
  - OEDEMA PERIPHERAL [None]
  - PANCYTOPENIA [None]
  - PLATELET COUNT [None]
